FAERS Safety Report 24973033 (Version 1)
Quarter: 2025Q1

REPORT INFORMATION
  Report Type: Spontaneous
  Country: ES (occurrence: ES)
  Receive Date: 20250216
  Receipt Date: 20250216
  Transmission Date: 20250408
  Serious: Yes (Hospitalization, Other)
  Sender: AUROBINDO
  Company Number: ES-AEMPS-1626734

PATIENT
  Age: 83 Year
  Sex: Male
  Weight: 85 kg

DRUGS (3)
  1. CIPROFLOXACIN [Suspect]
     Active Substance: CIPROFLOXACIN
     Indication: Cystitis escherichia
     Dosage: 500 MILLIGRAM, TWO TIMES A DAY (500MG EVERY 12 HOURS)
     Route: 042
     Dates: start: 20250114, end: 20250115
  2. ERTAPENEM [Suspect]
     Active Substance: ERTAPENEM
     Indication: Cystitis escherichia
     Dosage: 1 GRAM, ONCE A DAY (1 EVERY 24 HOURS)
     Route: 042
     Dates: start: 20250108, end: 20250114
  3. CEFTRIAXONE [Suspect]
     Active Substance: CEFTRIAXONE
     Indication: Cystitis escherichia
     Dosage: 2 GRAM, ONCE A DAY (2GR EVERY 24 HOURS)
     Route: 042
     Dates: start: 20250108, end: 20250109

REACTIONS (1)
  - Clostridium difficile infection [Recovering/Resolving]

NARRATIVE: CASE EVENT DATE: 20250115
